FAERS Safety Report 5158802-2 (Version None)
Quarter: 2006Q4

REPORT INFORMATION
  Report Type: 
  Country: None (occurrence: None)
  Receive Date: 20061128
  Receipt Date: 20060713
  Transmission Date: 20070319
  Serious: Yes (Hospitalization)
  Sender: FDA-Public Use
  Company Number: CA-ELI_LILLY_AND_COMPANY-CA200607002589

PATIENT
  Age: 56 Year
  Sex: Female

DRUGS (6)
  1. FORTEO [Suspect]
     Indication: OSTEOPOROSIS
     Dosage: 20 UG, DAILY (1/D)
     Dates: start: 20051215
  2. INTERFERON BETA [Concomitant]
  3. MESALAZINE [Concomitant]
  4. PAROXETINE HYDROCHLORIDE [Concomitant]
  5. SENNA [Concomitant]
     Dosage: UNK, UNK
  6. ALPRAZOLAM [Concomitant]

REACTIONS (1)
  - SMALL INTESTINAL OBSTRUCTION [None]
